FAERS Safety Report 5532261-X (Version None)
Quarter: 2007Q4

REPORT INFORMATION
  Report Type: 
  Country: None (occurrence: None)
  Receive Date: 20071130
  Receipt Date: 20071130
  Transmission Date: 20080405
  Serious: Yes (Hospitalization)
  Sender: FDA-Public Use
  Company Number: None

PATIENT
  Age: 73 Year
  Sex: Female
  Weight: 56 kg

DRUGS (2)
  1. ERBITUX [Suspect]
     Indication: TONGUE NEOPLASM MALIGNANT STAGE UNSPECIFIED
     Dosage: 306 MG WKLY IV
     Route: 042
     Dates: start: 20070820, end: 20071120
  2. TAXOL [Suspect]
     Indication: TONGUE NEOPLASM MALIGNANT STAGE UNSPECIFIED
     Dosage: 61 MG WKLY IV
     Route: 042
     Dates: start: 20070919, end: 20071120

REACTIONS (9)
  - ANAEMIA [None]
  - CELLULITIS [None]
  - HYPOCALCAEMIA [None]
  - LOCAL SWELLING [None]
  - MUCOSAL INFLAMMATION [None]
  - NEOPLASM PROGRESSION [None]
  - OEDEMA [None]
  - PAROTID GLAND ENLARGEMENT [None]
  - SWELLING FACE [None]
